FAERS Safety Report 14366886 (Version 3)
Quarter: 2018Q1

REPORT INFORMATION
  Report Type: Spontaneous
  Country: US (occurrence: US)
  Receive Date: 20180109
  Receipt Date: 20180220
  Transmission Date: 20180509
  Serious: Yes (Hospitalization)
  Sender: FDA-Public Use
  Company Number: US-ASTRAZENECA-2018SE01541

PATIENT
  Age: 61 Year
  Sex: Female
  Weight: 117.9 kg

DRUGS (22)
  1. VICTOZA [Concomitant]
     Active Substance: LIRAGLUTIDE
  2. PERCOCET [Concomitant]
     Active Substance: ACETAMINOPHEN\OXYCODONE HYDROCHLORIDE
  3. HUMALOG [Concomitant]
     Active Substance: INSULIN LISPRO
  4. CREON [Concomitant]
     Active Substance: PANCRELIPASE AMYLASE\PANCRELIPASE LIPASE\PANCRELIPASE PROTEASE
  5. FARXIGA [Suspect]
     Active Substance: DAPAGLIFLOZIN PROPANEDIOL
     Indication: TYPE 2 DIABETES MELLITUS
     Route: 048
     Dates: start: 201512
  6. LISINOPRIL. [Concomitant]
     Active Substance: LISINOPRIL
  7. GABAPENTIN. [Concomitant]
     Active Substance: GABAPENTIN
  8. PLAVIX [Concomitant]
     Active Substance: CLOPIDOGREL BISULFATE
  9. ASPIRIN. [Concomitant]
     Active Substance: ASPIRIN
  10. NITROSTAT [Concomitant]
     Active Substance: NITROGLYCERIN
  11. METOPROLOL SUCCINATE. [Concomitant]
     Active Substance: METOPROLOL SUCCINATE
  12. FENOFIBRATE. [Concomitant]
     Active Substance: FENOFIBRATE
  13. TRAZODONE [Concomitant]
     Active Substance: TRAZODONE HYDROCHLORIDE
  14. LEVOFLOXACIN. [Concomitant]
     Active Substance: LEVOFLOXACIN
  15. PROTONIX [Concomitant]
     Active Substance: PANTOPRAZOLE SODIUM
  16. FARXIGA [Suspect]
     Active Substance: DAPAGLIFLOZIN PROPANEDIOL
     Indication: TYPE 2 DIABETES MELLITUS
     Route: 048
     Dates: start: 20150318, end: 20160121
  17. NICOTROL [Concomitant]
     Active Substance: NICOTINE
  18. TOPROL XL [Concomitant]
     Active Substance: METOPROLOL SUCCINATE
  19. PRAVASTATIN. [Concomitant]
     Active Substance: PRAVASTATIN
  20. FAMOTIDINE. [Concomitant]
     Active Substance: FAMOTIDINE
  21. TRAMADOL HYDROCHLORIDE. [Concomitant]
     Active Substance: TRAMADOL HYDROCHLORIDE
  22. BENZONATATE. [Concomitant]
     Active Substance: BENZONATATE

REACTIONS (5)
  - Pancreatitis acute [Unknown]
  - Diarrhoea [Unknown]
  - Abdominal pain [Unknown]
  - Diabetic ketoacidosis [Unknown]
  - Vomiting [Unknown]

NARRATIVE: CASE EVENT DATE: 2015
